FAERS Safety Report 4847117-5 (Version None)
Quarter: 2005Q4

REPORT INFORMATION
  Report Type: 
  Country: None (occurrence: None)
  Receive Date: 20051202
  Receipt Date: 20051128
  Transmission Date: 20060501
  Serious: Yes (Hospitalization)
  Sender: FDA-Public Use
  Company Number: 2005S1000860

PATIENT
  Age: 29 Day
  Sex: Male

DRUGS (6)
  1. INOMAX [Suspect]
     Indication: LUNG DISORDER
     Dosage: 5 PPM; INH_GAS;INH;CONT
     Route: 055
     Dates: start: 20051029, end: 20051116
  2. INOMAX [Suspect]
     Indication: PROPHYLAXIS
     Dosage: 5 PPM; INH_GAS;INH;CONT
     Route: 055
     Dates: start: 20051029, end: 20051116
  3. CEFOTAXINE (CEFOTAXINE) [Concomitant]
  4. METRONIDAZOLE [Concomitant]
  5. VANCOMYCIN (VACOMYCIN) [Concomitant]
  6. FENTANYL [Concomitant]

REACTIONS (6)
  - FEEDING DISORDER NEONATAL [None]
  - INTESTINAL PERFORATION [None]
  - NECROTISING ENTEROCOLITIS NEONATAL [None]
  - NEONATAL INFECTION [None]
  - NEONATAL INTESTINAL OBSTRUCTION [None]
  - PERITONITIS [None]
